FAERS Safety Report 24771696 (Version 3)
Quarter: 2025Q1

REPORT INFORMATION
  Report Type: Spontaneous
  Country: IT (occurrence: IT)
  Receive Date: 20241224
  Receipt Date: 20250226
  Transmission Date: 20250409
  Serious: Yes (Other)
  Sender: ROCHE
  Company Number: None

PATIENT
  Age: 65 Year
  Sex: Female

DRUGS (1)
  1. OCREVUS [Suspect]
     Active Substance: OCRELIZUMAB
     Indication: Progressive multiple sclerosis
     Route: 042
     Dates: start: 2018, end: 2024

REACTIONS (2)
  - Lentigo maligna [Recovered/Resolved]
  - Endometrial cancer stage III [Recovered/Resolved]

NARRATIVE: CASE EVENT DATE: 20230701
